FAERS Safety Report 4926314-4 (Version None)
Quarter: 2006Q1

REPORT INFORMATION
  Report Type: 
  Country: None (occurrence: None)
  Receive Date: 20060228
  Receipt Date: 20051027
  Transmission Date: 20060701
  Serious: No
  Sender: FDA-Public Use
  Company Number: US-GLAXOSMITHKLINE-A0579903A

PATIENT
  Age: 70 Year
  Sex: Male

DRUGS (3)
  1. LAMICTAL [Suspect]
     Indication: CONVULSION PROPHYLAXIS
     Dosage: 25MG PER DAY
     Route: 048
     Dates: start: 20051026
  2. DILANTIN [Concomitant]
  3. PLAVIX [Concomitant]

REACTIONS (1)
  - SOMNOLENCE [None]
